FAERS Safety Report 7056024-1 (Version None)
Quarter: 2010Q4

REPORT INFORMATION
  Report Type: 
  Country: None (occurrence: None)
  Receive Date: 20101021
  Receipt Date: 20101015
  Transmission Date: 20110411
  Serious: Yes (Hospitalization, Congenital Anomaly)
  Sender: FDA-Public Use
  Company Number: A0887845A

PATIENT
  Sex: Female

DRUGS (3)
  1. PAXIL [Suspect]
     Indication: PRODUCT USED FOR UNKNOWN INDICATION
     Dates: end: 19960701
  2. SPIRONOLACTONE [Concomitant]
     Dates: end: 19960701
  3. LO/OVRAL [Concomitant]
     Dates: end: 19960701

REACTIONS (5)
  - CARDIAC FAILURE CONGESTIVE [None]
  - COARCTATION OF THE AORTA [None]
  - DRUG EXPOSURE DURING PREGNANCY [None]
  - PULMONARY ARTERY BANDING [None]
  - VENTRICULAR SEPTAL DEFECT [None]
